FAERS Safety Report 5831492-9 (Version None)
Quarter: 2008Q3

REPORT INFORMATION
  Report Type: 
  Country: None (occurrence: None)
  Receive Date: 20080801
  Receipt Date: 20080720
  Transmission Date: 20090109
  Serious: Yes (Other)
  Sender: FDA-Public Use
  Company Number: US-PFIZER INC-2008061772

PATIENT
  Sex: Female
  Weight: 74.8 kg

DRUGS (2)
  1. CHANTIX [Suspect]
     Indication: SMOKING CESSATION THERAPY
     Dates: start: 20080620, end: 20080701
  2. ZYBAN [Suspect]

REACTIONS (2)
  - ANAPHYLACTIC REACTION [None]
  - CONSTIPATION [None]
